FAERS Safety Report 4555798-9 (Version None)
Quarter: 2005Q1

REPORT INFORMATION
  Report Type: 
  Country: None (occurrence: None)
  Receive Date: 20050118
  Receipt Date: 20040610
  Transmission Date: 20050727
  Serious: Yes (Hospitalization)
  Sender: FDA-Public Use
  Company Number: A001-002-006103

PATIENT
  Sex: Female

DRUGS (5)
  1. ARICEPT [Suspect]
     Indication: DEMENTIA
     Dosage: 5 MG, 1 IN 1 D, ORAL
     Route: 048
  2. COUMADIN [Concomitant]
  3. HIGH BLOOD PRESSURE  MEDICATION [Concomitant]
  4. RISPERDAL [Concomitant]
  5. OTHER DRUGS (UNKNOWN) [Concomitant]

REACTIONS (1)
  - ATRIOVENTRICULAR BLOCK [None]
